FAERS Safety Report 22348455 (Version 1)
Quarter: 2023Q2

REPORT INFORMATION
  Report Type: Report from Study
  Country: US (occurrence: US)
  Receive Date: 20230522
  Receipt Date: 20230522
  Transmission Date: 20230722
  Serious: Yes (Other)
  Sender: FDA-Public Use
  Company Number: US-GILEAD-2023-0628799

PATIENT
  Age: 37 Year
  Sex: Female

DRUGS (20)
  1. AZTREONAM LYSINE [Suspect]
     Active Substance: AZTREONAM LYSINE
     Indication: Cystic fibrosis lung
     Dosage: 75 MG, TID
     Route: 055
  2. TRIKAFTA [Suspect]
     Active Substance: ELEXACAFTOR\IVACAFTOR\TEZACAFTOR
     Indication: Product used for unknown indication
     Dosage: UNK
     Route: 065
     Dates: start: 201910, end: 202011
  3. ALBUTEROL [Concomitant]
     Active Substance: ALBUTEROL
  4. PANTOPRAZOLE [Concomitant]
     Active Substance: PANTOPRAZOLE
  5. BUPROPION [Concomitant]
     Active Substance: BUPROPION
  6. VITAMIN D NOS [Concomitant]
     Active Substance: VITAMIN D NOS
  7. IRON [Concomitant]
     Active Substance: IRON
  8. ACYCLOVIR [Concomitant]
     Active Substance: ACYCLOVIR
  9. .ALPHA.-TOCOPHEROL [Concomitant]
     Active Substance: .ALPHA.-TOCOPHEROL
  10. SINGULAIR [Concomitant]
     Active Substance: MONTELUKAST SODIUM
  11. NEXIUM HP [Concomitant]
     Active Substance: AMOXICILLIN\CLARITHROMYCIN\ESOMEPRAZOLE
  12. LEXAPRO [Concomitant]
     Active Substance: ESCITALOPRAM OXALATE
  13. ZINC [Concomitant]
     Active Substance: ZINC
  14. LORATADINE [Concomitant]
     Active Substance: LORATADINE
  15. VITAMIN A [Concomitant]
     Active Substance: VITAMIN A
  16. VITAMIN K [Concomitant]
     Active Substance: PHYTONADIONE
  17. VITAMIN B12 [Concomitant]
     Active Substance: CYANOCOBALAMIN
  18. PULMOZYME [Concomitant]
     Active Substance: DORNASE ALFA
  19. VYVANSE [Concomitant]
     Active Substance: LISDEXAMFETAMINE DIMESYLATE
  20. LORAZEPAM [Concomitant]
     Active Substance: LORAZEPAM

REACTIONS (9)
  - Haemorrhagic ovarian cyst [Unknown]
  - Cataract [Not Recovered/Not Resolved]
  - COVID-19 [Unknown]
  - Dental caries [Not Recovered/Not Resolved]
  - Premature menopause [Not Recovered/Not Resolved]
  - Depression [Not Recovered/Not Resolved]
  - Anxiety [Not Recovered/Not Resolved]
  - Nausea [Unknown]
  - Weight increased [Unknown]

NARRATIVE: CASE EVENT DATE: 20221101
